FAERS Safety Report 20128731 (Version 1)
Quarter: 2021Q4

REPORT INFORMATION
  Report Type: Spontaneous
  Country: ES (occurrence: ES)
  Receive Date: 20211130
  Receipt Date: 20211130
  Transmission Date: 20220304
  Serious: Yes (Hospitalization)
  Sender: FDA-Public Use
  Company Number: None

PATIENT
  Age: 50 Year
  Sex: Female

DRUGS (6)
  1. ATORVASTATIN CALCIUM\EZETIMIBE [Suspect]
     Active Substance: ATORVASTATIN CALCIUM\EZETIMIBE
     Indication: Dyslipidaemia
     Dosage: FORMULATION REPORTED AS: FILM COATED TABLETS. 30 TABLETS.
     Route: 048
     Dates: start: 201905, end: 20210801
  2. COMIRNATY [Suspect]
     Active Substance: TOZINAMERAN
     Indication: COVID-19 immunisation
     Dosage: FORMULATION REPORTED AS: CONCENTRATE FOR DISPERSION FOR INJECTION, 195 VIALS (MULTIDOSE).
     Route: 030
     Dates: start: 20210705, end: 20210705
  3. ENALAPRIL MALEATE [Concomitant]
     Active Substance: ENALAPRIL MALEATE
     Indication: Hypertension
     Dosage: 2142MA
     Route: 048
     Dates: start: 201904, end: 20210801
  4. ACIDO ACETILSALICILICO KERN PHARMA [Concomitant]
     Indication: Cerebral infarction
     Dosage: FORMULATION REPORTED AS: GASTRO-RESISTANT GENERIC TABLETS. 500 TABLETS.
     Route: 048
     Dates: start: 201904, end: 20210801
  5. COMIRNATY [Concomitant]
     Active Substance: TOZINAMERAN
     Indication: COVID-19 immunisation
     Dosage: FORMULATION REPORTED AS: CONCENTRATE FOR DISPERSION FOR INJECTION, 195 VIALS (MULTIDOSE)
     Route: 030
     Dates: start: 20210614, end: 20210614
  6. AMLODIPINE BESYLATE [Concomitant]
     Active Substance: AMLODIPINE BESYLATE
     Indication: Hypertension
     Dosage: FORMULATION REPORTED AS: GENERIC TABLETS. 500 TABLETS.
     Route: 048
     Dates: start: 201904

REACTIONS (1)
  - Necrotising myositis [Recovering/Resolving]

NARRATIVE: CASE EVENT DATE: 20210707
